FAERS Safety Report 9846777 (Version 1)
Quarter: 2013Q4

REPORT INFORMATION
  Report Type: Spontaneous
  Country: US (occurrence: None)
  Receive Date: 20131219
  Receipt Date: 20131219
  Transmission Date: 20140711
  Serious: Yes (Death, Disabling)
  Sender: FDA-Public Use
  Company Number: 163-20785-13034454

PATIENT
  Age: 87 Year
  Sex: Male

DRUGS (2)
  1. THALOMID [Suspect]
     Indication: PLASMA CELL MYELOMA
     Dosage: 1 IN 1 D
     Route: 048
     Dates: start: 201002, end: 2010
  2. VELCADE (BORTEZOMIB) (UNKNOWN) [Concomitant]

REACTIONS (3)
  - Plasma cell myeloma [None]
  - Neuropathy peripheral [None]
  - Somnolence [None]
